FAERS Safety Report 14138026 (Version 1)
Quarter: 2017Q4

REPORT INFORMATION
  Report Type: Spontaneous
  Country: US (occurrence: US)
  Receive Date: 20171027
  Receipt Date: 20171027
  Transmission Date: 20180321
  Serious: Yes (Other)
  Sender: FDA-Public Use
  Company Number: US-PFIZER INC-2017461550

PATIENT
  Age: 52 Year
  Sex: Male

DRUGS (2)
  1. GEMCITABINE HYDROCHLORIDE. [Suspect]
     Active Substance: GEMCITABINE HYDROCHLORIDE
     Indication: CHOLANGIOCARCINOMA
     Dosage: GEMCITABINE ON DAY 1 AND OXALIPLATIN DAY 2) FOR 6 MONTHS
  2. OXALIPLATIN. [Suspect]
     Active Substance: OXALIPLATIN
     Indication: CHOLANGIOCARCINOMA
     Dosage: GEMCITABINE ON DAY 1 AND OXALIPLATIN DAY 2) FOR 6 MONTHS

REACTIONS (1)
  - Thrombotic microangiopathy [Unknown]
